FAERS Safety Report 26200866 (Version 1)
Quarter: 2025Q4

REPORT INFORMATION
  Report Type: Spontaneous
  Country: EU (occurrence: EU)
  Receive Date: 20251226
  Receipt Date: 20251226
  Transmission Date: 20260118
  Serious: Yes (Hospitalization)
  Sender: ACCORD
  Company Number: None

PATIENT
  Age: 69 Year
  Sex: Male

DRUGS (5)
  1. METHOTREXATE [Suspect]
     Active Substance: METHOTREXATE
     Indication: B-cell lymphoma
     Dates: start: 20250923, end: 20250923
  2. CYTARABINE [Suspect]
     Active Substance: CYTARABINE
     Indication: B-cell lymphoma
     Dosage: CYTARABINE 1G/M2 EVERY 12 HOURS: DAY +2 AND +3, HAS ONLY RECEIVED 3 DOSES
     Dates: start: 20251025, end: 20251026
  3. RITUXIMAB [Concomitant]
     Active Substance: RITUXIMAB
     Indication: B-cell lymphoma
     Dosage: RITUXIMAB (716 MG), DAY +1 (03.09) AND DAY +7 (09.09)
     Dates: start: 20250903, end: 20250909
  4. METHOTREXATE [Suspect]
     Active Substance: METHOTREXATE
     Indication: B-cell lymphoma
     Dosage: 1700 MG IV
     Dates: start: 20251024, end: 20251024
  5. RITUXIMAB [Concomitant]
     Active Substance: RITUXIMAB
     Indication: B-cell lymphoma
     Dosage: 686 MG: DAY +1 (23.10.25)
     Dates: start: 20251023, end: 20251023

REACTIONS (1)
  - Mixed liver injury [Recovered/Resolved]

NARRATIVE: CASE EVENT DATE: 20251026
